FAERS Safety Report 25107124 (Version 1)
Quarter: 2025Q1

REPORT INFORMATION
  Report Type: Spontaneous
  Country: CN (occurrence: CN)
  Receive Date: 20250321
  Receipt Date: 20250321
  Transmission Date: 20250409
  Serious: Yes (Hospitalization, Other)
  Sender: NOVARTIS
  Company Number: CN-002147023-NVSC2025CN045335

PATIENT
  Age: 56 Year
  Sex: Female
  Weight: 76 kg

DRUGS (2)
  1. CARBAMAZEPINE [Suspect]
     Active Substance: CARBAMAZEPINE
     Indication: Epilepsy
     Dosage: 200.000 MG, BID
     Route: 048
     Dates: start: 20250210, end: 20250309
  2. VALPROATE SODIUM [Suspect]
     Active Substance: VALPROATE SODIUM
     Indication: Product used for unknown indication
     Dosage: 0.400 G, BID
     Route: 048
     Dates: start: 20250210, end: 20250309

REACTIONS (10)
  - Skin reaction [Unknown]
  - Erythema multiforme [Unknown]
  - Rash erythematous [Unknown]
  - Flushing [Unknown]
  - Blister [Unknown]
  - Liver injury [Unknown]
  - Renal injury [Unknown]
  - Hyperpyrexia [Recovered/Resolved]
  - Sepsis [Unknown]
  - Seasonal allergy [Unknown]

NARRATIVE: CASE EVENT DATE: 20250309
